FAERS Safety Report 8851790 (Version 1)
Quarter: 2012Q4

REPORT INFORMATION
  Report Type: Spontaneous
  Country: US (occurrence: None)
  Receive Date: 20121018
  Receipt Date: 20121018
  Transmission Date: 20130627
  Serious: Yes (Hospitalization)
  Sender: FDA-Public Use
  Company Number: None

PATIENT
  Age: 60 Year
  Sex: Female
  Weight: 91 kg

DRUGS (1)
  1. ARIPIPRAZOLE [Suspect]
     Indication: DEPRESSION
     Route: 048

REACTIONS (7)
  - Metabolic alkalosis [None]
  - Hyperglycaemic hyperosmolar nonketotic syndrome [None]
  - Hypotension [None]
  - Dizziness [None]
  - Asthenia [None]
  - Cough [None]
  - Insomnia [None]
